FAERS Safety Report 4967514-7 (Version None)
Quarter: 2006Q2

REPORT INFORMATION
  Report Type: 
  Country: None (occurrence: None)
  Receive Date: 20060407
  Receipt Date: 20060407
  Transmission Date: 20061013
  Serious: Yes (Hospitalization)
  Sender: FDA-Public Use
  Company Number: None

PATIENT
  Age: 13 Year
  Sex: Female
  Weight: 42.6381 kg

DRUGS (1)
  1. KETOPROFEN [Suspect]
     Indication: HEADACHE
     Dosage: ONE CAPSULE   ONCE AT NIGHT
     Dates: start: 20050815, end: 20051115

REACTIONS (7)
  - ABDOMINAL PAIN [None]
  - DUODENITIS [None]
  - HAEMATEMESIS [None]
  - PAIN [None]
  - RECTAL HAEMORRHAGE [None]
  - ULCER [None]
  - WEIGHT DECREASED [None]
